FAERS Safety Report 18198202 (Version 1)
Quarter: 2020Q3

REPORT INFORMATION
  Report Type: Spontaneous
  Country: IN (occurrence: IN)
  Receive Date: 20200826
  Receipt Date: 20200826
  Transmission Date: 20201103
  Serious: Yes (Hospitalization, Disabling)
  Sender: FDA-Public Use
  Company Number: IN-MYLANLABS-2020M1074118

PATIENT
  Age: 24 Year
  Sex: Female

DRUGS (4)
  1. EMTRICITABINE [Concomitant]
     Active Substance: EMTRICITABINE
     Indication: CONGENITAL HIV INFECTION
     Dosage: UNK
     Route: 065
  2. LOPINAVIR/RITONAVIR [Suspect]
     Active Substance: LOPINAVIR\RITONAVIR
     Indication: CONGENITAL HIV INFECTION
     Dosage: UNK
     Route: 065
  3. ERGOTAMINE [Interacting]
     Active Substance: CAFFEINE\ERGOTAMINE\ERGOTAMINE TARTRATE
     Indication: MIGRAINE
     Dosage: UNK UNK, BID
     Route: 065
  4. TENOFOVIR [Concomitant]
     Active Substance: TENOFOVIR
     Indication: CONGENITAL HIV INFECTION
     Dosage: UNK
     Route: 065

REACTIONS (3)
  - Ergot poisoning [Recovered/Resolved]
  - Drug interaction [Recovered/Resolved]
  - Gangrene [Recovered/Resolved with Sequelae]
